FAERS Safety Report 14239497 (Version 1)
Quarter: 2017Q4

REPORT INFORMATION
  Report Type: Spontaneous
  Country: CA (occurrence: CA)
  Receive Date: 20171130
  Receipt Date: 20171130
  Transmission Date: 20180321
  Serious: Yes (Death, Other)
  Sender: FDA-Public Use
  Company Number: CA-GLAXOSMITHKLINE-CA2015GSK071778

PATIENT
  Age: 60 Year
  Sex: Female

DRUGS (3)
  1. BENLYSTA [Suspect]
     Active Substance: BELIMUMAB
     Dosage: 400 MG, Z
  2. BENLYSTA [Suspect]
     Active Substance: BELIMUMAB
     Dosage: UNK
     Dates: start: 20171012
  3. BENLYSTA [Suspect]
     Active Substance: BELIMUMAB
     Indication: SYSTEMIC LUPUS ERYTHEMATOSUS
     Dosage: 490 DF, Z

REACTIONS (16)
  - Nausea [Unknown]
  - Palpitations [Unknown]
  - Balance disorder [Unknown]
  - Weight decreased [Unknown]
  - Rash [Unknown]
  - Fall [Unknown]
  - Hypoaesthesia [Unknown]
  - Dizziness postural [Unknown]
  - Death [Fatal]
  - Vomiting [Unknown]
  - Wound [Unknown]
  - Pyrexia [Unknown]
  - Diarrhoea [Recovered/Resolved]
  - Feeling cold [Unknown]
  - Decreased appetite [Unknown]
  - Malaise [Recovered/Resolved]

NARRATIVE: CASE EVENT DATE: 201711
